FAERS Safety Report 8327852-7 (Version None)
Quarter: 2012Q2

REPORT INFORMATION
  Report Type: 
  Country: None (occurrence: None)
  Receive Date: 20120502
  Receipt Date: 20120418
  Transmission Date: 20120825
  Serious: No
  Sender: FDA-Public Use
  Company Number: CN-JNJFOC-20111004758

PATIENT
  Sex: Male
  Weight: 60 kg

DRUGS (2)
  1. DURAGESIC-100 [Suspect]
     Indication: OESOPHAGEAL CARCINOMA
     Dosage: 1/4 OF THE PATCH ON 9TH OCTOBER
     Route: 062
     Dates: start: 20111009, end: 20111011
  2. MORPHINE [Concomitant]
     Route: 065

REACTIONS (4)
  - WRONG TECHNIQUE IN DRUG USAGE PROCESS [None]
  - DRUG INEFFECTIVE [None]
  - APPLICATION SITE PRURITUS [None]
  - INAPPROPRIATE SCHEDULE OF DRUG ADMINISTRATION [None]
